FAERS Safety Report 9381503 (Version 2)
Quarter: 2013Q3

REPORT INFORMATION
  Report Type: Spontaneous
  Country: BR (occurrence: BR)
  Receive Date: 20130703
  Receipt Date: 20130719
  Transmission Date: 20140515
  Serious: Yes (Other)
  Sender: FDA-Public Use
  Company Number: BR-RANBAXY-2013R5-70627

PATIENT
  Age: 2 Year
  Sex: Male
  Weight: 14.5 kg

DRUGS (2)
  1. CEFUROXIME AXETIL [Suspect]
     Indication: SINUSITIS
     Dosage: 3 ML, BID
     Route: 048
     Dates: start: 20130617, end: 20130701
  2. MONTELAIR [Concomitant]
     Indication: PRODUCT USED FOR UNKNOWN INDICATION
     Dosage: UNK
     Route: 065
     Dates: start: 20130618, end: 20130701

REACTIONS (2)
  - Condition aggravated [Recovered/Resolved]
  - Eyelid oedema [Recovered/Resolved]
